FAERS Safety Report 19610359 (Version 2)
Quarter: 2022Q1

REPORT INFORMATION
  Report Type: Spontaneous
  Country: US (occurrence: US)
  Receive Date: 20210726
  Receipt Date: 20220112
  Transmission Date: 20220423
  Serious: Yes (Hospitalization)
  Sender: FDA-Public Use
  Company Number: US-AMERICAN REGENT INC-2021001964

PATIENT
  Age: 43 Year
  Sex: Female
  Weight: 106.12 kg

DRUGS (18)
  1. VENOFER [Suspect]
     Active Substance: IRON SUCROSE
     Indication: Iron deficiency anaemia
     Dosage: 300 MILLIGRAM, SINGLE (RATE = 193 ML/HR)
     Route: 042
     Dates: start: 20190807, end: 20190807
  2. VENOFER [Suspect]
     Active Substance: IRON SUCROSE
     Dosage: 200 MG, SODIUM CHLORIDE 0.9% PIGGYBACK 100 ML
     Route: 042
     Dates: start: 20170414, end: 20170414
  3. SOLU-MEDROL [Concomitant]
     Active Substance: METHYLPREDNISOLONE SODIUM SUCCINATE
     Indication: Premedication
     Dosage: 125 MILLIGRAM=2 ML DAY OF TX
     Dates: start: 20190807, end: 20190807
  4. HEPARIN [Concomitant]
     Active Substance: HEPARIN SODIUM
     Indication: Catheter management
     Dosage: 500 UNITS = 5 ML
     Dates: start: 20190807, end: 20190807
  5. SODIUM CHLORIDE [Concomitant]
     Active Substance: SODIUM CHLORIDE
     Indication: Catheter management
     Dosage: 10 ML, SINGLE
     Dates: start: 20190807, end: 20190807
  6. SODIUM CHLORIDE [Concomitant]
     Active Substance: SODIUM CHLORIDE
     Indication: Medication dilution
     Dosage: 250 ML, 50 ML/HR, IV PIGGYBACK, DAY OF TX
     Route: 042
     Dates: start: 20190807, end: 20190807
  7. EMPAGLIFLOZIN [Concomitant]
     Active Substance: EMPAGLIFLOZIN
     Indication: Product used for unknown indication
     Dosage: 25 MILLIGRAM, QAM
     Route: 048
  8. VICTOZA [Concomitant]
     Active Substance: LIRAGLUTIDE
     Indication: Product used for unknown indication
     Dosage: 1.8 MILLIGRAM, QD
     Route: 058
  9. PANTOPRAZOLE [Concomitant]
     Active Substance: PANTOPRAZOLE
     Indication: Product used for unknown indication
     Dosage: 40 MILLIGRAM, QD
     Route: 048
  10. KETOROLAC [Concomitant]
     Active Substance: KETOROLAC TROMETHAMINE
     Indication: Pain
     Dosage: 10 MG QID, NOT TO EXCEED 40 MG/DAY AND 5 DAYS DURATION FOR ALL DOSE FORMS, PRN
     Route: 048
  11. PLECANATIDE [Concomitant]
     Active Substance: PLECANATIDE
     Indication: Product used for unknown indication
     Dosage: 3 MILLIGRAM
     Route: 048
  12. ONDANSETRON [Concomitant]
     Active Substance: ONDANSETRON
     Indication: Nausea
     Dosage: 4 MILLIGRAM, Q8H PRN
  13. ONDANSETRON [Concomitant]
     Active Substance: ONDANSETRON
     Indication: Vomiting
  14. SYMBICORT [Concomitant]
     Active Substance: BUDESONIDE\FORMOTEROL FUMARATE DIHYDRATE
     Indication: Product used for unknown indication
     Dosage: 2 PUFFS, INHALATION, BID, 6.9 G
  15. BUSPIRONE [Concomitant]
     Active Substance: BUSPIRONE HYDROCHLORIDE
     Indication: Product used for unknown indication
     Dosage: 7.5 MILLIGRAM, TID
     Route: 048
  16. METFORMIN [Concomitant]
     Active Substance: METFORMIN HYDROCHLORIDE
     Indication: Product used for unknown indication
     Dosage: 1000 MILLIGRAM, BID
     Route: 048
  17. METOPROLOL [Concomitant]
     Active Substance: METOPROLOL
     Indication: Product used for unknown indication
     Dosage: 25 MILLIGRAM, QD
     Route: 048
  18. DULOXETINE [Concomitant]
     Active Substance: DULOXETINE
     Indication: Product used for unknown indication
     Dosage: 30 MILLIGRAM, QD, DO NOT CRUSH OR CHEW
     Route: 048

REACTIONS (7)
  - Palpitations [Unknown]
  - Rash [Unknown]
  - Blood glucose increased [Recovered/Resolved]
  - Syncope [Recovered/Resolved]
  - Nausea [Unknown]
  - Dizziness [Unknown]
  - Incorrect product administration duration [Unknown]

NARRATIVE: CASE EVENT DATE: 20170414
